FAERS Safety Report 6599903-1 (Version None)
Quarter: 2010Q1

REPORT INFORMATION
  Report Type: 
  Country: None (occurrence: None)
  Receive Date: 20100217
  Receipt Date: 20100203
  Transmission Date: 20100710
  Serious: Yes (Other)
  Sender: FDA-Public Use
  Company Number: 1000009564

PATIENT
  Age: 18 Year
  Sex: Male
  Weight: 70 kg

DRUGS (4)
  1. LEXAPRO [Suspect]
     Indication: DEPRESSED MOOD
     Dosage: (ONCE), ORAL; 10 MG (10 MG, 1 IN 1 D), ORAL
     Route: 048
     Dates: start: 20090901, end: 20090901
  2. LEXAPRO [Suspect]
     Indication: DEPRESSED MOOD
     Dosage: (ONCE), ORAL; 10 MG (10 MG, 1 IN 1 D), ORAL
     Route: 048
     Dates: start: 20090901
  3. BENXODIAZEPINE (TABLETS) [Concomitant]
  4. CANNABIS (TABLETS) [Concomitant]

REACTIONS (6)
  - ANXIETY [None]
  - DRUG TOXICITY [None]
  - INTENTIONAL OVERDOSE [None]
  - PALPITATIONS [None]
  - POOR QUALITY SLEEP [None]
  - TREMOR [None]
